FAERS Safety Report 6976883-8 (Version None)
Quarter: 2010Q3

REPORT INFORMATION
  Report Type: 
  Country: None (occurrence: None)
  Receive Date: 20100910
  Receipt Date: 20100901
  Transmission Date: 20110219
  Serious: Yes (Hospitalization)
  Sender: FDA-Public Use
  Company Number: B0673109A

PATIENT
  Age: 80 Year
  Sex: Male

DRUGS (4)
  1. AVODART [Suspect]
     Dosage: .5MG PER DAY
     Route: 048
     Dates: start: 20090101, end: 20100101
  2. SINTROM [Concomitant]
     Indication: AORTIC VALVE DISEASE
     Route: 065
  3. COKENZEN [Concomitant]
     Route: 065
  4. GLICLAZIDE [Concomitant]
     Route: 065

REACTIONS (1)
  - RESPIRATORY DISORDER [None]
